FAERS Safety Report 11787357 (Version 1)
Quarter: 2015Q4

REPORT INFORMATION
  Report Type: Spontaneous
  Country: US (occurrence: US)
  Receive Date: 20151130
  Receipt Date: 20151130
  Transmission Date: 20160305
  Serious: No
  Sender: FDA-Public Use
  Company Number: US-PFIZER INC-2015374641

PATIENT
  Age: 64 Year
  Sex: Female

DRUGS (6)
  1. DILAUDID [Suspect]
     Active Substance: HYDROMORPHONE HYDROCHLORIDE
     Dosage: UNK
  2. E.E.S. [Suspect]
     Active Substance: ERYTHROMYCIN ETHYLSUCCINATE
     Dosage: UNK
  3. NEURONTIN [Suspect]
     Active Substance: GABAPENTIN
     Dosage: UNK
  4. DICLOFENAC [Suspect]
     Active Substance: DICLOFENAC
     Dosage: UNK
  5. PREDNISONE. [Suspect]
     Active Substance: PREDNISONE
     Dosage: UNK
  6. TEQUIN [Suspect]
     Active Substance: GATIFLOXACIN
     Dosage: UNK

REACTIONS (1)
  - Drug hypersensitivity [Unknown]
